FAERS Safety Report 22147633 (Version 1)
Quarter: 2023Q1

REPORT INFORMATION
  Report Type: Spontaneous
  Country: US (occurrence: US)
  Receive Date: 20230328
  Receipt Date: 20230328
  Transmission Date: 20230418
  Serious: Yes (Other)
  Sender: FDA-Public Use
  Company Number: US-HORIZON THERAPEUTICS-HZN-2023-002284

PATIENT

DRUGS (5)
  1. PREDNISONE [Suspect]
     Active Substance: PREDNISONE
     Indication: Radiation pneumonitis
     Dosage: DOSE OF 40 MG EACH DAY FOR 2 WEEKS (8 WEEK PREDNISONE TAPER DOSE)
     Route: 048
  2. PREDNISONE [Suspect]
     Active Substance: PREDNISONE
     Dosage: DOSE TAPER OF 10 MG EVERY 2 WEEKS FOR FOUR WEEKS
     Route: 048
  3. PREDNISONE [Suspect]
     Active Substance: PREDNISONE
     Dosage: FOLLOWING 10 MG FOR 1 WEEK
     Route: 048
  4. PREDNISONE [Suspect]
     Active Substance: PREDNISONE
     Dosage: 5 MG FOR 1 WEEK
     Route: 048
  5. NINTEDANIB [Suspect]
     Active Substance: NINTEDANIB
     Indication: Radiation pneumonitis
     Dosage: 150 MG, BID
     Route: 048

REACTIONS (5)
  - Pulmonary fibrosis [Unknown]
  - Dyspnoea [Unknown]
  - Fatigue [Unknown]
  - Pleural effusion [Unknown]
  - Off label use [Unknown]
